FAERS Safety Report 15001942 (Version 2)
Quarter: 2018Q2

REPORT INFORMATION
  Report Type: Report from Study
  Country: ES (occurrence: ES)
  Receive Date: 20180612
  Receipt Date: 20180618
  Transmission Date: 20180711
  Serious: Yes (Hospitalization)
  Sender: FDA-Public Use
  Company Number: ES-PFIZER INC-2018232188

PATIENT
  Age: 64 Year
  Sex: Male

DRUGS (6)
  1. SEROTONIN [Concomitant]
     Active Substance: SEROTONIN
     Dosage: UNK
     Route: 065
  2. IRINOTECAN HCL [Suspect]
     Active Substance: IRINOTECAN HYDROCHLORIDE
     Indication: COLORECTAL CANCER METASTATIC
     Dosage: 343 MG, CYCLIC
     Route: 041
     Dates: start: 20140603, end: 20140603
  3. 5 FU [Suspect]
     Active Substance: FLUOROURACIL
     Indication: COLORECTAL CANCER METASTATIC
     Dosage: 4584 MG, CYCLIC
     Route: 041
     Dates: start: 20140603, end: 20140603
  4. 5 FU [Suspect]
     Active Substance: FLUOROURACIL
     Dosage: 764 MG, CYCLIC
     Route: 040
     Dates: start: 20140603, end: 20140603
  5. LEUCOVORIN /00566701/ [Suspect]
     Active Substance: LEUCOVORIN
     Indication: COLORECTAL CANCER METASTATIC
     Dosage: 764 MG, CYCLIC
     Route: 041
     Dates: start: 20140603, end: 20140603
  6. AFLIBERCEPT [Suspect]
     Active Substance: AFLIBERCEPT
     Indication: COLORECTAL CANCER METASTATIC
     Dosage: 296 MG, CYCLIC
     Route: 041
     Dates: start: 20140603, end: 20140603

REACTIONS (9)
  - Nausea [Recovered/Resolved]
  - Vomiting [Recovered/Resolved]
  - Asthenia [Recovered/Resolved]
  - Dysphagia [Recovered/Resolved]
  - Back pain [Recovered/Resolved]
  - Rectal haemorrhage [Recovered/Resolved]
  - Diarrhoea [Recovered/Resolved]
  - Nausea [Recovered/Resolved]
  - Vomiting [Recovered/Resolved]

NARRATIVE: CASE EVENT DATE: 20140603
